FAERS Safety Report 7029316-X (Version None)
Quarter: 2010Q3

REPORT INFORMATION
  Report Type: 
  Country: None (occurrence: None)
  Receive Date: 20100924
  Receipt Date: 20091015
  Transmission Date: 20110219
  Serious: Yes (Life-Threatening, Hospitalization)
  Sender: FDA-Public Use
  Company Number: WAES 0910USA01907

PATIENT
  Age: 66 Year
  Sex: Female

DRUGS (2)
  1. VYTORIN [Suspect]
     Dosage: 10/40 MG/DAILY/PO
     Route: 048
  2. LOPID [Concomitant]

REACTIONS (1)
  - RHABDOMYOLYSIS [None]
